FAERS Safety Report 11421607 (Version 2)
Quarter: 2016Q3

REPORT INFORMATION
  Report Type: Report from Study
  Country: US (occurrence: US)
  Receive Date: 20150826
  Receipt Date: 20160901
  Transmission Date: 20161109
  Serious: Yes (Death, Hospitalization)
  Sender: FDA-Public Use
  Company Number: US-ROCHE-ITM201505IM015250

PATIENT
  Sex: Male
  Weight: 88.53 kg

DRUGS (3)
  1. ESBRIET [Suspect]
     Active Substance: PIRFENIDONE
     Indication: IDIOPATHIC PULMONARY FIBROSIS
     Route: 048
  2. ESBRIET [Suspect]
     Active Substance: PIRFENIDONE
     Route: 048
     Dates: start: 20150408
  3. COUMADIN [Concomitant]
     Active Substance: WARFARIN SODIUM

REACTIONS (7)
  - Death [Fatal]
  - Drug ineffective [Unknown]
  - Dizziness [Unknown]
  - Malaise [Unknown]
  - Pneumonia [Unknown]
  - Dyspnoea [Unknown]
  - Hypersomnia [Unknown]
